FAERS Safety Report 25152323 (Version 1)
Quarter: 2025Q2

REPORT INFORMATION
  Report Type: Report from Study
  Country: JP (occurrence: JP)
  Receive Date: 20250402
  Receipt Date: 20250402
  Transmission Date: 20250717
  Serious: Yes (Other)
  Sender: RADIUS PHARM
  Company Number: JP-RADIUS HEALTH INC.-2024JP002398

PATIENT
  Age: 77 Year
  Sex: Female

DRUGS (7)
  1. ABALOPARATIDE [Suspect]
     Active Substance: ABALOPARATIDE
     Indication: Osteoporosis
     Route: 058
     Dates: start: 20240321
  2. LOXOPROFEN SODIUM [Concomitant]
     Active Substance: LOXOPROFEN SODIUM
     Indication: Back pain
     Route: 065
  3. ESFLURBIPROFEN\HERBALS [Concomitant]
     Active Substance: ESFLURBIPROFEN\HERBALS
     Indication: Product used for unknown indication
     Route: 061
  4. ELDECALCITOL [Concomitant]
     Active Substance: ELDECALCITOL
     Indication: Product used for unknown indication
     Route: 065
     Dates: start: 20240321
  5. VALTREX [Concomitant]
     Active Substance: VALACYCLOVIR HYDROCHLORIDE
     Indication: Herpes simplex
     Dosage: 2 DOSAGE FORM (TABLETS) BID (MORNING AND EVENING) WHEN SYMPTOMS GET SEVERE
     Route: 048
     Dates: end: 202403
  6. OMEPRAZOLE [Concomitant]
     Active Substance: OMEPRAZOLE
     Indication: Product used for unknown indication
     Route: 065
  7. UNSPECIFIED INGREDIENT [Concomitant]
     Active Substance: UNSPECIFIED INGREDIENT
     Indication: Constipation

REACTIONS (15)
  - Blood pressure increased [Unknown]
  - Physical deconditioning [Recovered/Resolved]
  - Chills [Recovering/Resolving]
  - Malaise [Recovering/Resolving]
  - Decreased appetite [Not Recovered/Not Resolved]
  - Yawning [Unknown]
  - Feeling abnormal [Unknown]
  - Taste disorder [Unknown]
  - Oedema [Unknown]
  - Discomfort [Unknown]
  - Palpitations [Recovered/Resolved]
  - Nausea [Recovering/Resolving]
  - Hypoglycaemia [Unknown]
  - Pyrexia [Unknown]
  - Blood pressure decreased [Not Recovered/Not Resolved]

NARRATIVE: CASE EVENT DATE: 20240101
